FAERS Safety Report 5730754-3 (Version None)
Quarter: 2008Q2

REPORT INFORMATION
  Report Type: 
  Country: None (occurrence: None)
  Receive Date: 20080507
  Receipt Date: 20080425
  Transmission Date: 20081010
  Serious: Yes (Disabling)
  Sender: FDA-Public Use
  Company Number: GB-PFIZER INC-2008037111

PATIENT
  Age: 32 Year
  Sex: Female
  Weight: 43 kg

DRUGS (6)
  1. MEDROXYPROGESTERONE ACETATE [Suspect]
     Indication: CONTRACEPTION
     Route: 030
     Dates: start: 20060101, end: 20060101
  2. MEDROXYPROGESTERONE ACETATE [Interacting]
     Route: 030
     Dates: start: 20071219, end: 20071219
  3. MEDROXYPROGESTERONE ACETATE [Interacting]
     Route: 030
     Dates: start: 20080330, end: 20080330
  4. HYDROXYCHLOROQUINE SULFATE [Interacting]
     Route: 048
  5. DICLOFENAC [Concomitant]
     Route: 048
  6. LEVOTHYROXINE SODIUM [Concomitant]
     Route: 048

REACTIONS (2)
  - DRUG INTERACTION [None]
  - INJECTION SITE ATROPHY [None]
